FAERS Safety Report 13576626 (Version 1)
Quarter: 2017Q2

REPORT INFORMATION
  Report Type: Spontaneous
  Country: US (occurrence: US)
  Receive Date: 20170524
  Receipt Date: 20170524
  Transmission Date: 20170830
  Serious: Yes (Disabling)
  Sender: FDA-Public Use
  Company Number: None

PATIENT
  Age: 32 Year
  Sex: Female
  Weight: 99.88 kg

DRUGS (5)
  1. MAGNESIUM GLYCINATE [Concomitant]
     Active Substance: MAGNESIUM GLYCINATE
  2. ZINC. [Concomitant]
     Active Substance: ZINC
  3. MOLYBDENUM [Concomitant]
     Active Substance: MOLYBDENUM
  4. PARAGARD T 380A [Suspect]
     Active Substance: COPPER
  5. PRIMROSE OIL [Concomitant]

REACTIONS (9)
  - Pregnancy [None]
  - Disturbance in attention [None]
  - Anger [None]
  - Anxiety [None]
  - Feeling hot [None]
  - Depression [None]
  - Mental impairment [None]
  - Stress [None]
  - Paraesthesia [None]

NARRATIVE: CASE EVENT DATE: 20100218
